FAERS Safety Report 9410333 (Version 1)
Quarter: 2013Q3

REPORT INFORMATION
  Report Type: Spontaneous
  Country: AU (occurrence: AU)
  Receive Date: 20130719
  Receipt Date: 20130719
  Transmission Date: 20140515
  Serious: Yes (Hospitalization)
  Sender: FDA-Public Use
  Company Number: AU-009507513-1307AUS008276

PATIENT
  Age: 2 Year
  Sex: Female

DRUGS (1)
  1. LORATADINE [Suspect]
     Dosage: 6 DF
     Route: 048
     Dates: start: 20100215

REACTIONS (8)
  - Hypertension [Unknown]
  - Accidental exposure to product by child [Unknown]
  - Accidental overdose [Unknown]
  - Tachyarrhythmia [Unknown]
  - Nausea [Unknown]
  - Vomiting [Unknown]
  - Somnolence [Unknown]
  - Headache [Unknown]
